FAERS Safety Report 8518729-2 (Version None)
Quarter: 2012Q3

REPORT INFORMATION
  Report Type: 
  Country: None (occurrence: None)
  Receive Date: 20120718
  Receipt Date: 20120626
  Transmission Date: 20120928
  Serious: Yes (Hospitalization, Other)
  Sender: FDA-Public Use
  Company Number: US-ASTRAZENECA-2011SE46972

PATIENT
  Age: 63 Year
  Sex: Female
  Weight: 64 kg

DRUGS (18)
  1. SPIRIVA [Concomitant]
  2. ATIVAN [Concomitant]
  3. SEROQUEL [Suspect]
     Indication: BIPOLAR DISORDER
     Route: 048
  4. SEROQUEL [Suspect]
     Route: 048
  5. CYMBALTA [Concomitant]
  6. PROAIR HFA [Concomitant]
  7. SYMBICORT [Concomitant]
     Route: 055
  8. ZOLPIDEM [Concomitant]
  9. SEROQUEL [Suspect]
     Route: 048
     Dates: start: 20090101
  10. HALDOL [Suspect]
     Route: 065
  11. VICODIN [Concomitant]
     Dosage: AS NEEDED
  12. NEXIUM [Concomitant]
     Route: 048
  13. SEROQUEL [Suspect]
     Dosage: 200 MG, HALF TABLET
     Route: 048
  14. ACETAZOLAMIDE [Concomitant]
  15. DILTIAZEM [Concomitant]
  16. SEROQUEL [Suspect]
     Route: 048
     Dates: end: 20120301
  17. SEROQUEL [Suspect]
     Route: 048
  18. KLOR-CON [Concomitant]

REACTIONS (16)
  - GLAUCOMA [None]
  - CONFUSIONAL STATE [None]
  - RENAL FAILURE [None]
  - CATARACT [None]
  - THINKING ABNORMAL [None]
  - OBSESSIVE-COMPULSIVE DISORDER [None]
  - DIARRHOEA [None]
  - EYE PRURITUS [None]
  - EYELID PTOSIS [None]
  - PSYCHOMOTOR HYPERACTIVITY [None]
  - INTENTIONAL DRUG MISUSE [None]
  - MANIA [None]
  - MOOD SWINGS [None]
  - OVERDOSE [None]
  - ABNORMAL DREAMS [None]
  - ADVERSE DRUG REACTION [None]
